FAERS Safety Report 4399850-X (Version None)
Quarter: 2004Q3

REPORT INFORMATION
  Report Type: 
  Country: None (occurrence: None)
  Receive Date: 20040714
  Receipt Date: 20040629
  Transmission Date: 20050211
  Serious: Yes (Hospitalization, Other)
  Sender: FDA-Public Use
  Company Number: EWC040739828

PATIENT
  Age: 33 Year
  Sex: Male

DRUGS (8)
  1. OLANZAPINE [Suspect]
     Indication: HYPOMANIA
     Dosage: 2.5 MG/1
     Dates: start: 20040626, end: 20040626
  2. OLANZAPINE [Suspect]
     Indication: PSYCHOTIC DISORDER
     Dosage: 2.5 MG/1
     Dates: start: 20040626, end: 20040626
  3. ZOPICLONE (ZOPICLONE) [Concomitant]
  4. CHLORPROMAZINE [Concomitant]
  5. CLONAZEPAM [Concomitant]
  6. VALPROATE SODIUM [Concomitant]
  7. RISPERIDONE [Concomitant]
  8. NORFLOXACIN [Concomitant]

REACTIONS (5)
  - APHASIA [None]
  - BLOOD PRESSURE INCREASED [None]
  - DYSPHAGIA [None]
  - LOWER RESPIRATORY TRACT INFECTION [None]
  - NEUROLEPTIC MALIGNANT SYNDROME [None]
